FAERS Safety Report 6077509-0 (Version None)
Quarter: 2009Q1

REPORT INFORMATION
  Report Type: 
  Country: None (occurrence: None)
  Receive Date: 20090211
  Receipt Date: 20090127
  Transmission Date: 20090719
  Serious: Yes (Other)
  Sender: FDA-Public Use
  Company Number: 8042525

PATIENT
  Sex: Male
  Weight: 4.19 kg

DRUGS (3)
  1. KEPPRA [Suspect]
     Indication: GRAND MAL CONVULSION
     Dosage: 2000 MG /D TRP
     Route: 064
  2. KEPPRA [Suspect]
     Indication: GRAND MAL CONVULSION
     Dosage: 2000 MG /D TRM
     Route: 063
  3. TARDYFERON [Concomitant]

REACTIONS (4)
  - CAESAREAN SECTION [None]
  - DRUG EXPOSURE VIA BREAST MILK [None]
  - MATERNAL DRUGS AFFECTING FOETUS [None]
  - UMBILICAL CORD ABNORMALITY [None]
